FAERS Safety Report 9471825 (Version 1)
Quarter: 2013Q3

REPORT INFORMATION
  Report Type: Spontaneous
  Country: US (occurrence: None)
  Receive Date: 20130819
  Receipt Date: 20130819
  Transmission Date: 20140515
  Serious: Yes (Other)
  Sender: FDA-Public Use
  Company Number: JPI-P-034468

PATIENT
  Age: 24 Year
  Sex: Male

DRUGS (1)
  1. XYREM (500 MILLIGRAM/MILLILITERS, SOLUTION) (SODIUM OXYBATE) [Suspect]
     Indication: CATAPLEXY
     Dosage: 6 GM ( 3 GM, 2 IN 1 D) ORAL
     Dates: start: 20130304

REACTIONS (2)
  - Tooth extraction [None]
  - Knee operation [None]
